FAERS Safety Report 25755618 (Version 1)
Quarter: 2025Q3

REPORT INFORMATION
  Report Type: Spontaneous
  Country: CA (occurrence: CA)
  Receive Date: 20250903
  Receipt Date: 20250903
  Transmission Date: 20251021
  Serious: Yes (Other)
  Sender: ACCORD
  Company Number: CA-MLMSERVICE-20250815-PI615680-00195-1

PATIENT
  Sex: Female

DRUGS (1)
  1. LEUPROLIDE ACETATE [Suspect]
     Active Substance: LEUPROLIDE ACETATE
     Indication: Precocious puberty
     Route: 030

REACTIONS (4)
  - Headache [Recovered/Resolved]
  - Abdominal pain [Recovered/Resolved]
  - Intracranial pressure increased [Unknown]
  - Off label use [Unknown]
